FAERS Safety Report 24443914 (Version 2)
Quarter: 2024Q4

REPORT INFORMATION
  Report Type: Report from Study
  Country: US (occurrence: US)
  Receive Date: 20241016
  Receipt Date: 20241017
  Transmission Date: 20250114
  Serious: No
  Sender: ROCHE
  Company Number: US-ROCHE-2351503

PATIENT
  Age: 44 Year
  Sex: Female

DRUGS (11)
  1. RITUXIMAB [Suspect]
     Active Substance: RITUXIMAB
     Indication: Relapsing multiple sclerosis
     Dosage: 600 MG, EVERY 6 MONTHS
     Route: 042
  2. RITUXIMAB [Suspect]
     Active Substance: RITUXIMAB
     Indication: Multiple sclerosis
  3. MAXALT [Concomitant]
     Active Substance: RIZATRIPTAN BENZOATE
  4. VALIUM [Concomitant]
     Active Substance: DIAZEPAM
     Route: 048
  5. TOPAMAX [Concomitant]
     Active Substance: TOPIRAMATE
  6. HERBALS\TURMERIC [Concomitant]
     Active Substance: HERBALS\TURMERIC
  7. SYMMETREL [Concomitant]
     Active Substance: AMANTADINE HYDROCHLORIDE
  8. SUDOGEST [Concomitant]
     Active Substance: PSEUDOEPHEDRINE HYDROCHLORIDE
  9. NEURONTIN [Concomitant]
     Active Substance: GABAPENTIN
  10. FISH OIL [Concomitant]
     Active Substance: FISH OIL
  11. GARLIC [Concomitant]
     Active Substance: GARLIC

REACTIONS (2)
  - Off label use [Unknown]
  - No adverse event [Unknown]
